FAERS Safety Report 5449497-9 (Version None)
Quarter: 2007Q3

REPORT INFORMATION
  Report Type: 
  Country: None (occurrence: None)
  Receive Date: 20070907
  Receipt Date: 20070823
  Transmission Date: 20080115
  Serious: Yes (Hospitalization)
  Sender: FDA-Public Use
  Company Number: 2007RR-09568

PATIENT
  Age: 28 Year
  Sex: Male

DRUGS (6)
  1. CIPROFLOXACIN HCL [Suspect]
     Dosage: 500 MG, BID, ORAL
     Route: 048
  2. CEFAZOLIN [Concomitant]
  3. DIMENHYDRINATE [Concomitant]
  4. METRONIDAZOLE TABLETS 400MG (METRONIDAZOLE) UNKNOWN [Concomitant]
  5. SULAFASALAZINE (SULFASALAZINE) [Concomitant]
  6. URSODIOL [Concomitant]

REACTIONS (1)
  - MANIA [None]
